FAERS Safety Report 6590951-4 (Version None)
Quarter: 2010Q1

REPORT INFORMATION
  Report Type: 
  Country: None (occurrence: None)
  Receive Date: 20100219
  Receipt Date: 20100212
  Transmission Date: 20100710
  Serious: Yes (Other)
  Sender: FDA-Public Use
  Company Number: JP-GENENTECH-297481

PATIENT
  Age: 68 Year
  Sex: Male

DRUGS (1)
  1. ACTIVASE [Suspect]
     Indication: RETINAL VEIN OCCLUSION
     Dosage: 125 A?G, UNK

REACTIONS (1)
  - GLAUCOMA [None]
